FAERS Safety Report 15633905 (Version 1)
Quarter: 2018Q4

REPORT INFORMATION
  Report Type: Spontaneous
  Country: IN (occurrence: IN)
  Receive Date: 20181119
  Receipt Date: 20181119
  Transmission Date: 20190205
  Serious: Yes (Hospitalization)
  Sender: FDA-Public Use
  Company Number: IN-PFIZER INC-2018468977

PATIENT
  Sex: Female

DRUGS (3)
  1. OVRAL-L [Suspect]
     Active Substance: ETHINYL ESTRADIOL\LEVONORGESTREL
     Indication: UTERINE HAEMORRHAGE
     Dosage: UNK
     Dates: start: 20170228
  2. OVRAL-L [Suspect]
     Active Substance: ETHINYL ESTRADIOL\LEVONORGESTREL
     Indication: VAGINAL HAEMORRHAGE
  3. OVRAL-L [Suspect]
     Active Substance: ETHINYL ESTRADIOL\LEVONORGESTREL
     Indication: MENSTRUAL DISORDER

REACTIONS (9)
  - Pain in extremity [Unknown]
  - Pruritus [Unknown]
  - Product use in unapproved indication [Unknown]
  - Gangrene [Unknown]
  - Erythema [Unknown]
  - Vomiting [Unknown]
  - Peripheral artery thrombosis [Unknown]
  - Aortic thrombosis [Unknown]
  - Diarrhoea [Unknown]
